FAERS Safety Report 4782643-9 (Version None)
Quarter: 2005Q3

REPORT INFORMATION
  Report Type: 
  Country: None (occurrence: None)
  Receive Date: 20050929
  Receipt Date: 20050525
  Transmission Date: 20060218
  Serious: No
  Sender: FDA-Public Use
  Company Number: 406015

PATIENT
  Age: 77 Year
  Sex: Male

DRUGS (5)
  1. COREG [Suspect]
     Indication: HYPERTENSION
     Dosage: 25MG PER DAY
     Route: 048
  2. NORVASC [Concomitant]
  3. ALLOPURINOL [Concomitant]
  4. GLUCOTROL [Concomitant]
  5. AVANDIA [Concomitant]

REACTIONS (1)
  - DIZZINESS EXERTIONAL [None]
